FAERS Safety Report 5003812-9 (Version None)
Quarter: 2006Q2

REPORT INFORMATION
  Report Type: 
  Country: None (occurrence: None)
  Receive Date: 20060515
  Receipt Date: 20060504
  Transmission Date: 20061013
  Serious: Yes (Other)
  Sender: FDA-Public Use
  Company Number: 2006060663

PATIENT
  Sex: Female

DRUGS (1)
  1. LYRICA [Suspect]
     Indication: POLYNEUROPATHY IN MALIGNANT DISEASE
     Dosage: 300 MG DAILY , ORAL
     Route: 048
     Dates: start: 20051101

REACTIONS (4)
  - COORDINATION ABNORMAL [None]
  - DEAFNESS [None]
  - DYSPHAGIA [None]
  - SINUS TACHYCARDIA [None]
